FAERS Safety Report 16964436 (Version 2)
Quarter: 2019Q4

REPORT INFORMATION
  Report Type: Spontaneous
  Country: US (occurrence: US)
  Receive Date: 20191027
  Receipt Date: 20191107
  Transmission Date: 20200122
  Serious: No
  Sender: FDA-Public Use
  Company Number: US-AMGEN INC.-USASP2019175160

PATIENT
  Age: 39 Year
  Sex: Female
  Weight: 80.27 kg

DRUGS (1)
  1. AIMOVIG [Suspect]
     Active Substance: ERENUMAB-AOOE
     Indication: MIGRAINE PROPHYLAXIS
     Dosage: 70 MILLIGRAM, QMO
     Route: 065
     Dates: start: 2019

REACTIONS (3)
  - Wrong technique in product usage process [Unknown]
  - Injection site haemorrhage [Unknown]
  - Device malfunction [Unknown]

NARRATIVE: CASE EVENT DATE: 20191018
